FAERS Safety Report 6300649-5 (Version None)
Quarter: 2009Q3

REPORT INFORMATION
  Report Type: 
  Country: None (occurrence: None)
  Receive Date: 20090803
  Receipt Date: 20090727
  Transmission Date: 20100115
  Serious: Yes (Hospitalization)
  Sender: FDA-Public Use
  Company Number: 09FI002773

PATIENT
  Age: 85 Year
  Sex: Female

DRUGS (3)
  1. SIMVASTATIN [Suspect]
     Indication: DRUG USE FOR UNKNOWN INDICATION
     Dosage: 20 MG, QD, ORAL
     Route: 048
  2. REUMACON (DEMETHYL PODOPHYLLOTOXIN BENZYLIDENE GLUCOSID, PODOPHYLLOTOT [Suspect]
     Indication: RHEUMATOID ARTHRITIS
  3. DIURETICS [Concomitant]

REACTIONS (3)
  - CARDIAC FAILURE [None]
  - DRUG INTERACTION [None]
  - RHABDOMYOLYSIS [None]
